FAERS Safety Report 9679107 (Version 3)
Quarter: 2013Q4

REPORT INFORMATION
  Report Type: Spontaneous
  Country: UY (occurrence: UY)
  Receive Date: 20131108
  Receipt Date: 20131121
  Transmission Date: 20140711
  Serious: Yes (Hospitalization)
  Sender: FDA-Public Use
  Company Number: UY-ABBVIE-13P-168-1137069-00

PATIENT
  Age: 16 Year
  Sex: Female
  Weight: 65 kg

DRUGS (3)
  1. HUMIRA [Suspect]
     Indication: CROHN^S DISEASE
     Dates: start: 2009, end: 2012
  2. HUMIRA [Suspect]
     Dates: start: 201207
  3. AZATHIOPRINE [Concomitant]
     Indication: PRODUCT USED FOR UNKNOWN INDICATION

REACTIONS (5)
  - Ileal stenosis [Recovered/Resolved]
  - Subileus [Recovered/Resolved]
  - Intestinal mass [Unknown]
  - Anaemia [Unknown]
  - Inflammatory marker increased [Unknown]
